FAERS Safety Report 4616615-1 (Version None)
Quarter: 2005Q1

REPORT INFORMATION
  Report Type: 
  Country: None (occurrence: None)
  Receive Date: 20050318
  Receipt Date: 20050308
  Transmission Date: 20050727
  Serious: Yes (Hospitalization, Other)
  Sender: FDA-Public Use
  Company Number: MC200500247

PATIENT
  Age: 86 Year
  Sex: Female
  Weight: 56.7 kg

DRUGS (11)
  1. ANGIOMAX [Suspect]
     Dosage: 250 MG VIALS, INTRAVENOUS
     Route: 042
     Dates: start: 20050303, end: 20050303
  2. DIOVAN [Concomitant]
  3. GLIPIZIDE [Concomitant]
  4. LASIX [Concomitant]
  5. ISOSORBIDE (ISOSORBIDE) [Concomitant]
  6. FENTANYL [Concomitant]
  7. DIGOXIN [Concomitant]
  8. ASPIRIN TAB [Concomitant]
  9. K-DUR 10 [Concomitant]
  10. QUININE SULFATE (QUININE SULFATE) [Concomitant]
  11. NOVOLOG [Concomitant]

REACTIONS (6)
  - ACUTE PULMONARY OEDEMA [None]
  - DIFFUSE ALVEOLAR DAMAGE [None]
  - HAEMOPTYSIS [None]
  - LUNG INFILTRATION [None]
  - POST PROCEDURAL COMPLICATION [None]
  - PULMONARY ALVEOLAR HAEMORRHAGE [None]
